FAERS Safety Report 5237128-2 (Version None)
Quarter: 2007Q1

REPORT INFORMATION
  Report Type: 
  Country: None (occurrence: None)
  Receive Date: 20070213
  Receipt Date: 20070212
  Transmission Date: 20070707
  Serious: Yes (Congenital Anomaly)
  Sender: FDA-Public Use
  Company Number: US-GLAXOSMITHKLINE-A0638232B

PATIENT
  Sex: Male

DRUGS (3)
  1. COMBIVIR [Suspect]
     Indication: HIV INFECTION
     Dosage: 900MG PER DAY
     Dates: start: 20060301
  2. RETROVIR [Suspect]
     Indication: HIV INFECTION
     Dates: start: 20061128, end: 20061128
  3. VIRAMUNE [Concomitant]
     Dosage: 400MG PER DAY
     Dates: start: 20060301

REACTIONS (3)
  - CONGENITAL URETHRAL ANOMALY [None]
  - DRUG EXPOSURE DURING PREGNANCY [None]
  - MUSCLE DISORDER [None]
